FAERS Safety Report 8305656-9 (Version None)
Quarter: 2012Q1

REPORT INFORMATION
  Report Type: 
  Country: None (occurrence: None)
  Receive Date: 20120326
  Receipt Date: 20111130
  Transmission Date: 20120608
  Serious: Yes (Other)
  Sender: FDA-Public Use
  Company Number: PHEH2011US010588

PATIENT
  Age: 65 Year
  Sex: Male

DRUGS (2)
  1. TASIGNA [Suspect]
     Indication: CHROMOSOME ANALYSIS ABNORMAL
     Dosage: 400 MG, BID
     Dates: start: 20111030
  2. TASIGNA [Suspect]
     Indication: CHRONIC MYELOID LEUKAEMIA
     Dosage: 400 MG, BID
     Dates: start: 20111030

REACTIONS (2)
  - PLEURAL EFFUSION [None]
  - CONSTIPATION [None]
